FAERS Safety Report 9862226 (Version 2)
Quarter: 2014Q1

REPORT INFORMATION
  Report Type: Spontaneous
  Country: US (occurrence: US)
  Receive Date: 20140203
  Receipt Date: 20140203
  Transmission Date: 20141002
  Serious: Yes (Hospitalization)
  Sender: FDA-Public Use
  Company Number: US-OPTIMER-20130358

PATIENT
  Age: 69 Year
  Sex: Female
  Weight: 34.14 kg

DRUGS (29)
  1. DIFICID [Suspect]
     Indication: CLOSTRIDIUM DIFFICILE COLITIS
     Dosage: UNK
  2. XANAX [Concomitant]
     Indication: NERVOUSNESS
     Dosage: 0.5 MG, Q6H PRN
     Route: 048
  3. PULMICORT [Concomitant]
     Dosage: UNK
  4. ADVAIR [Concomitant]
     Dosage: UNK
  5. PREMARIN [Concomitant]
     Indication: PRODUCT USED FOR UNKNOWN INDICATION
     Dosage: 0.9 MG, UNK
  6. MULTIVITAMIN [Concomitant]
     Dosage: UNK
  7. PEPCID [Concomitant]
     Dosage: 40 MG, BID
     Route: 048
  8. BABY ASPIRIN [Concomitant]
     Dosage: 81 MG, UNK
  9. LIPITOR [Concomitant]
     Dosage: UNK
  10. DEPAKOTE [Concomitant]
     Dosage: 500 MG, UNK
     Dates: end: 20130409
  11. DEPAKOTE [Concomitant]
     Dosage: 500 MG, UNK
  12. ZOLOFT [Concomitant]
     Dosage: 100 MG, UNK
  13. AMBIEN [Concomitant]
     Dosage: 10 MG, AT BEDTIME
  14. FLORASTOR [Concomitant]
     Dosage: 250 MG, BID
     Route: 048
     Dates: start: 2013, end: 20130409
  15. FLORASTOR [Concomitant]
     Dosage: 250 MG, BID
     Route: 048
  16. BYSTOLIC [Concomitant]
     Dosage: 10 MG, UNK
  17. CALCIUM 600 PLUS VITAMIN D [Concomitant]
     Dosage: 600-200 MG, UNK
  18. ACETAMINOPHEN [Concomitant]
     Dosage: 325 MG, UNK
  19. XOPENEX [Concomitant]
     Dosage: UNK
  20. AMERGE [Concomitant]
     Dosage: 2.5 MG, UNK
  21. OXYGEN [Concomitant]
     Dosage: UNK
  22. SPIRIVA HANDIHALER [Concomitant]
     Dosage: UNK
  23. TESSALON PERLE [Concomitant]
     Dosage: UNK
  24. SUCRALFATE [Concomitant]
     Dosage: 1 GM, THREE TIMES PER DAY
     Route: 048
  25. ANUSOL HC [Concomitant]
     Dosage: UNK
  26. BACTROBAN [Concomitant]
     Dosage: UNK
  27. RANOLAZINE [Concomitant]
     Dosage: UNK
     Dates: end: 20130409
  28. VITAMIN B COMPLEX [Concomitant]
     Dosage: UNK
     Dates: end: 20130409
  29. ASCOMP W/CODEINE [Concomitant]
     Dosage: 50-325-40, UNK
     Dates: end: 20130409

REACTIONS (3)
  - Clostridium difficile colitis [Not Recovered/Not Resolved]
  - Disease recurrence [Not Recovered/Not Resolved]
  - Fall [Unknown]
